FAERS Safety Report 7124629-5 (Version None)
Quarter: 2010Q4

REPORT INFORMATION
  Report Type: 
  Country: None (occurrence: None)
  Receive Date: 20101122
  Receipt Date: 20101122
  Transmission Date: 20110411
  Serious: Yes (Life-Threatening, Hospitalization)
  Sender: FDA-Public Use
  Company Number: None

PATIENT
  Sex: Female
  Weight: 83.9154 kg

DRUGS (1)
  1. RITUXIMAB [Suspect]
     Indication: RHEUMATOID ARTHRITIS
     Dosage: 1000 MG  2 DOSES IN 1/2010  IV DRIP
     Route: 041
     Dates: start: 20100106, end: 20100120

REACTIONS (3)
  - ARTHRITIS BACTERIAL [None]
  - BACTEROIDES INFECTION [None]
  - DEVICE RELATED INFECTION [None]
